FAERS Safety Report 6737357-2 (Version None)
Quarter: 2010Q2

REPORT INFORMATION
  Report Type: 
  Country: None (occurrence: None)
  Receive Date: 20100524
  Receipt Date: 20100514
  Transmission Date: 20101027
  Serious: Yes (Hospitalization)
  Sender: FDA-Public Use
  Company Number: US-JNJFOC-20100506103

PATIENT
  Age: 91 Year
  Sex: Male
  Weight: 64.86 kg

DRUGS (9)
  1. TYLENOL (CAPLET) [Suspect]
     Route: 048
  2. TYLENOL (CAPLET) [Suspect]
     Indication: ARTHRITIS
     Route: 048
  3. NASACORT [Concomitant]
     Indication: NASAL POLYPS
  4. TRANDATE [Concomitant]
     Indication: HYPERTENSION
  5. BENAZEPRIL HYDROCHLORIDE [Concomitant]
     Indication: HYPERTENSION
  6. FINASTERIDE [Concomitant]
     Indication: HYPERTENSION
  7. HYDROCHLOROTHIAZIDE [Concomitant]
  8. CITALOPRAM HYDROBROMIDE [Concomitant]
     Indication: DEPRESSION
  9. LORAZEPAM [Concomitant]
     Indication: INSOMNIA

REACTIONS (3)
  - MYOCARDIAL INFARCTION [None]
  - PRODUCT QUALITY ISSUE [None]
  - SYNCOPE [None]
